FAERS Safety Report 4923858-6 (Version None)
Quarter: 2006Q1

REPORT INFORMATION
  Report Type: 
  Country: None (occurrence: None)
  Receive Date: 20060227
  Receipt Date: 20051114
  Transmission Date: 20060701
  Serious: Yes (Hospitalization, Other)
  Sender: FDA-Public Use
  Company Number: US-MERCK-0511USA02787

PATIENT
  Age: 66 Year
  Sex: Female

DRUGS (7)
  1. LIPITOR [Concomitant]
     Route: 065
  2. ASPIRIN [Concomitant]
     Route: 065
  3. VIOXX [Suspect]
     Route: 048
     Dates: start: 19991130
  4. VIOXX [Suspect]
     Route: 048
     Dates: start: 20010301
  5. SYNTHROID [Concomitant]
     Route: 065
  6. GLYBURIDE [Concomitant]
     Route: 065
  7. AVANDIA [Concomitant]
     Route: 065

REACTIONS (16)
  - BLOOD CHOLESTEROL INCREASED [None]
  - BREAST CANCER [None]
  - CARDIAC FAILURE CONGESTIVE [None]
  - CARDIOVASCULAR DISORDER [None]
  - CEREBROVASCULAR ACCIDENT [None]
  - CORONARY ARTERY DISEASE [None]
  - DEEP VEIN THROMBOSIS [None]
  - INJURY [None]
  - MITRAL VALVE INCOMPETENCE [None]
  - MYOCARDIAL INFARCTION [None]
  - MYOCARDIAL ISCHAEMIA [None]
  - OEDEMA PERIPHERAL [None]
  - PULMONARY EMBOLISM [None]
  - RENAL FAILURE [None]
  - THROMBOSIS [None]
  - TRICUSPID VALVE INCOMPETENCE [None]
